FAERS Safety Report 4932330-9 (Version None)
Quarter: 2006Q1

REPORT INFORMATION
  Report Type: 
  Country: None (occurrence: None)
  Receive Date: 20060301
  Receipt Date: 20060220
  Transmission Date: 20060701
  Serious: Yes (Hospitalization, Other)
  Sender: FDA-Public Use
  Company Number: 12920

PATIENT
  Age: 64 Year
  Sex: Male

DRUGS (13)
  1. PACLITAXEL [Suspect]
  2. CARBOPLATIN [Suspect]
  3. QUINAPRIL [Concomitant]
  4. GLICLAZIDE [Concomitant]
  5. METFORMIN HYDROCHLORIDE [Concomitant]
  6. OMEPRAZOLE [Concomitant]
  7. DEXAMETHASONE [Concomitant]
  8. TROPISETRON [Concomitant]
  9. PROMETHAZINE HCL [Concomitant]
  10. RANITIDINE HYDROCHLORIDE [Concomitant]
  11. ONDANSETRON [Concomitant]
  12. DOMPERIDONE [Concomitant]
  13. PARACETAMOL [Concomitant]

REACTIONS (7)
  - AUTONOMIC NEUROPATHY [None]
  - BLOOD PRESSURE ORTHOSTATIC DECREASED [None]
  - DEHYDRATION [None]
  - DIZZINESS POSTURAL [None]
  - ORTHOSTATIC HYPOTENSION [None]
  - SYNCOPE [None]
  - SYNCOPE VASOVAGAL [None]
